FAERS Safety Report 10231249 (Version 1)
Quarter: 2014Q2

REPORT INFORMATION
  Report Type: Spontaneous
  Country: US (occurrence: US)
  Receive Date: 20140611
  Receipt Date: 20140611
  Transmission Date: 20141212
  Serious: Yes (Other)
  Sender: FDA-Public Use
  Company Number: US-ACTAVIS-2014-12668

PATIENT
  Age: 6 Year
  Sex: Male

DRUGS (4)
  1. TRIMETHOPRIM-SULFAMETHOXAZOLE (UNKNOWN) [Suspect]
     Indication: PRODUCT USED FOR UNKNOWN INDICATION
     Dosage: 300 MG/ 60 MG BY TWICE A DAY.
     Route: 048
  2. VORICONAZOLE [Interacting]
     Indication: PNEUMONIA FUNGAL
     Dosage: 9 MG/KG, BID
     Route: 048
  3. VORICONAZOLE [Interacting]
     Dosage: 7 MG/KG, UNKNOWN
     Route: 048
  4. MICAFUNGIN [Concomitant]
     Indication: PRODUCT USED FOR UNKNOWN INDICATION
     Dosage: 45 MG DAILY.
     Route: 042

REACTIONS (2)
  - Cutaneous lupus erythematosus [Recovering/Resolving]
  - Drug interaction [Recovering/Resolving]
